FAERS Safety Report 15861486 (Version 1)
Quarter: 2019Q1

REPORT INFORMATION
  Report Type: Spontaneous
  Country: US (occurrence: US)
  Receive Date: 20190123
  Receipt Date: 20190123
  Transmission Date: 20190417
  Serious: Yes (Death)
  Sender: FDA-Public Use
  Company Number: None

PATIENT
  Age: 32 Year
  Sex: Male

DRUGS (5)
  1. CLONAZEPAM. [Concomitant]
     Active Substance: CLONAZEPAM
  2. FENTANYL. [Suspect]
     Active Substance: FENTANYL
  3. CANNABINOIDS [Concomitant]
     Active Substance: CANNABIS SATIVA SUBSP. SATIVA FLOWERING TOP
  4. CODEINE [Concomitant]
     Active Substance: CODEINE
  5. KRATOM [Suspect]
     Active Substance: HERBALS\MITRAGYNINE

REACTIONS (2)
  - Overdose [None]
  - Accidental death [None]

NARRATIVE: CASE EVENT DATE: 20180914
